FAERS Safety Report 7860042-0 (Version None)
Quarter: 2011Q4

REPORT INFORMATION
  Report Type: 
  Country: None (occurrence: None)
  Receive Date: 20111025
  Receipt Date: 20111014
  Transmission Date: 20120403
  Serious: Yes (Hospitalization, Other)
  Sender: FDA-Public Use
  Company Number: ACO_27269_2011

PATIENT
  Age: 46 Year
  Sex: Female

DRUGS (5)
  1. PRIMIDONE [Concomitant]
  2. TYSABRI [Concomitant]
  3. BACLOFEN [Concomitant]
  4. AMPYRA [Suspect]
     Indication: GAIT DISTURBANCE
     Dosage: 10 MG,BID, ORAL
     Route: 048
     Dates: end: 20110903
  5. LEXAPRO [Concomitant]

REACTIONS (3)
  - CEREBRAL HAEMORRHAGE [None]
  - FALL [None]
  - CONVULSION [None]
